FAERS Safety Report 13335126 (Version 1)
Quarter: 2017Q1

REPORT INFORMATION
  Report Type: Spontaneous
  Country: AR (occurrence: AR)
  Receive Date: 20170315
  Receipt Date: 20170315
  Transmission Date: 20170428
  Serious: Yes (Other)
  Sender: FDA-Public Use
  Company Number: AR-CIPLA LTD.-2017IT04085

PATIENT

DRUGS (4)
  1. ALENDRONATE [Suspect]
     Active Substance: ALENDRONATE SODIUM
     Indication: OSTEOPOROSIS
     Dosage: UNK, WEEKLY
     Route: 065
     Dates: start: 1999, end: 2006
  2. ERGOCALCIFEROL. [Concomitant]
     Active Substance: ERGOCALCIFEROL
     Indication: SUPPLEMENTATION THERAPY
     Dosage: UNK
     Route: 065
  3. CALCITRIOL. [Suspect]
     Active Substance: CALCITRIOL
     Dosage: 0.25 MCG/DAY
     Route: 065
  4. ZOLEDRONIC ACID [Suspect]
     Active Substance: ZOLEDRONIC ACID
     Indication: BACK PAIN
     Dosage: 5 MG/YEAR
     Route: 042
     Dates: start: 2006, end: 2008

REACTIONS (6)
  - Femur fracture [Recovered/Resolved]
  - Spinal column injury [Unknown]
  - Fall [Unknown]
  - Back pain [Unknown]
  - Spinal deformity [Unknown]
  - Osteonecrosis of jaw [Recovered/Resolved]
